FAERS Safety Report 18905885 (Version 4)
Quarter: 2022Q1

REPORT INFORMATION
  Report Type: Report from Study
  Country: US (occurrence: US)
  Receive Date: 20210217
  Receipt Date: 20220315
  Transmission Date: 20220423
  Serious: Yes (Other)
  Sender: FDA-Public Use
  Company Number: US-SHIRE-US201942222AA

PATIENT
  Sex: Female

DRUGS (1)
  1. HUMAN IMMUNOGLOBULIN G [Suspect]
     Active Substance: HUMAN IMMUNOGLOBULIN G
     Indication: Primary immunodeficiency syndrome
     Dosage: UNK
     Route: 042

REACTIONS (15)
  - Diabetes mellitus [Unknown]
  - Neuropathy peripheral [Unknown]
  - Urinary tract infection [Unknown]
  - Nasopharyngitis [Unknown]
  - Sinusitis [Unknown]
  - Pain [Unknown]
  - Fatigue [Unknown]
  - Peripheral swelling [Unknown]
  - Arthritis [Unknown]
  - Joint swelling [Unknown]
  - Arthralgia [Unknown]
  - Liver disorder [Unknown]
  - Bone disorder [Unknown]
  - Renal disorder [Unknown]
  - Fall [Unknown]
